FAERS Safety Report 7187216-9 (Version None)
Quarter: 2010Q4

REPORT INFORMATION
  Report Type: 
  Country: None (occurrence: None)
  Receive Date: 20101222
  Receipt Date: 20100903
  Transmission Date: 20110411
  Serious: Yes (Other)
  Sender: FDA-Public Use
  Company Number: PHHY2010FR79156

PATIENT
  Age: 63 Year
  Sex: Male

DRUGS (3)
  1. GLEEVEC [Suspect]
     Dosage: 400 MG DAILY
     Route: 048
     Dates: start: 20080601, end: 20080901
  2. GLEEVEC [Suspect]
     Dosage: 300 MG DAILY
     Route: 048
     Dates: start: 20080901, end: 20090601
  3. GLEEVEC [Suspect]
     Dosage: 200 MG DAILY
     Route: 048
     Dates: start: 20090601, end: 20090901

REACTIONS (2)
  - CONJUNCTIVAL HAEMORRHAGE [None]
  - HAEMATOTOXICITY [None]
